FAERS Safety Report 4821403-7 (Version None)
Quarter: 2005Q4

REPORT INFORMATION
  Report Type: 
  Country: None (occurrence: None)
  Receive Date: 20051107
  Receipt Date: 20050901
  Transmission Date: 20060501
  Serious: Yes (Hospitalization)
  Sender: FDA-Public Use
  Company Number: 200512955FR

PATIENT
  Age: 67 Year
  Sex: Female

DRUGS (7)
  1. HYDROCORTISONE [Suspect]
     Route: 048
  2. EBIXA [Suspect]
     Route: 048
  3. PLAVIX [Suspect]
     Route: 048
  4. LEVOTHYROX [Suspect]
     Route: 048
  5. FOSAMAX [Suspect]
     Route: 048
     Dates: start: 20050426, end: 20050510
  6. AMLOR [Suspect]
     Route: 048
  7. CALCIUM WITH VITAMIN D [Concomitant]
     Route: 048

REACTIONS (10)
  - FALL [None]
  - GENERAL NUTRITION DISORDER [None]
  - GINGIVITIS [None]
  - OSTEOLYSIS [None]
  - OSTEONECROSIS [None]
  - PAIN [None]
  - PYREXIA [None]
  - THROAT IRRITATION [None]
  - TOOTH ABSCESS [None]
  - TOOTH DISORDER [None]
